FAERS Safety Report 26110642 (Version 1)
Quarter: 2025Q4

REPORT INFORMATION
  Report Type: Spontaneous
  Country: EU (occurrence: EU)
  Receive Date: 20251202
  Receipt Date: 20251202
  Transmission Date: 20260117
  Serious: Yes (Other)
  Sender: ACCORD
  Company Number: None

PATIENT
  Age: 53 Year
  Sex: Male

DRUGS (4)
  1. DAPTOMYCIN [Interacting]
     Active Substance: DAPTOMYCIN
     Indication: Septic shock
     Dates: start: 20250510, end: 20250513
  2. MEROPENEM [Interacting]
     Active Substance: MEROPENEM
     Indication: Septic shock
     Dates: start: 20250509, end: 20250515
  3. VANCOMYCIN [Interacting]
     Active Substance: VANCOMYCIN
     Indication: Septic shock
     Dates: start: 20250509, end: 20250530
  4. CLOXACILLIN [Interacting]
     Active Substance: CLOXACILLIN
     Indication: Septic shock
     Dates: start: 20250510, end: 20250513

REACTIONS (1)
  - Pseudomembranous colitis [Recovered/Resolved]

NARRATIVE: CASE EVENT DATE: 20250511
